FAERS Safety Report 21326052 (Version 1)
Quarter: 2022Q3

REPORT INFORMATION
  Report Type: Spontaneous
  Country: US (occurrence: US)
  Receive Date: 20220913
  Receipt Date: 20220913
  Transmission Date: 20221027
  Serious: Yes (Other)
  Sender: FDA-Public Use
  Company Number: US-NOVARTISPH-NVSC2022US204653

PATIENT
  Sex: Female

DRUGS (2)
  1. MEKINIST [Suspect]
     Active Substance: TRAMETINIB DIMETHYL SULFOXIDE
     Indication: Malignant melanoma
     Dosage: 1.5 MG, QD
     Route: 048
     Dates: start: 20220111
  2. TAFINLAR [Suspect]
     Active Substance: DABRAFENIB MESYLATE
     Indication: Malignant melanoma
     Dosage: UNK (2 CAPSULE BY MOUTH EVERY MORNING AND 1 CAPSULE EVERY EVENING)
     Route: 048
     Dates: start: 20220111

REACTIONS (2)
  - Macular degeneration [Unknown]
  - Vision blurred [Unknown]
